FAERS Safety Report 14457474 (Version 1)
Quarter: 2018Q1

REPORT INFORMATION
  Report Type: Spontaneous
  Country: US (occurrence: US)
  Receive Date: 20180130
  Receipt Date: 20180130
  Transmission Date: 20180509
  Serious: No
  Sender: FDA-Public Use
  Company Number: US-PFIZER INC-2018036739

PATIENT
  Age: 38 Year
  Sex: Female
  Weight: 54.43 kg

DRUGS (3)
  1. NEURONTIN [Suspect]
     Active Substance: GABAPENTIN
     Indication: HYPERSENSITIVITY
     Dosage: 4800 OR 5800MG
     Dates: start: 200402, end: 2005
  2. NEURONTIN [Suspect]
     Active Substance: GABAPENTIN
     Indication: NERVE INJURY
  3. NEURONTIN [Suspect]
     Active Substance: GABAPENTIN
     Indication: SEIZURE LIKE PHENOMENA

REACTIONS (3)
  - Drug ineffective [Unknown]
  - Rash [Recovering/Resolving]
  - Overdose [Unknown]

NARRATIVE: CASE EVENT DATE: 200410
